FAERS Safety Report 8695124 (Version 2)
Quarter: 2013Q4

REPORT INFORMATION
  Report Type: Spontaneous
  Country: US (occurrence: US)
  Receive Date: 20120731
  Receipt Date: 20131108
  Transmission Date: 20140711
  Serious: Yes (Other)
  Sender: FDA-Public Use
  Company Number: US-009507513-1207USA009705

PATIENT
  Age: 54 Year
  Sex: Male

DRUGS (5)
  1. ZOCOR [Suspect]
     Route: 048
  2. MEVACOR TABLET [Suspect]
     Route: 048
  3. PRAVACHOL [Suspect]
  4. NIACIN [Suspect]
  5. XANAX [Concomitant]

REACTIONS (3)
  - Burning sensation [Unknown]
  - Hot flush [Unknown]
  - Drug ineffective [Unknown]
